FAERS Safety Report 17571807 (Version 1)
Quarter: 2020Q1

REPORT INFORMATION
  Report Type: Spontaneous
  Country: US (occurrence: US)
  Receive Date: 20200320
  Receipt Date: 20200320
  Transmission Date: 20200409
  Serious: No
  Sender: FDA-Public Use
  Company Number: None

PATIENT
  Age: 55 Year
  Sex: Female

DRUGS (1)
  1. REPATHA [Suspect]
     Active Substance: EVOLOCUMAB
     Indication: HYPERLIPIDAEMIA
     Dosage: ?          OTHER FREQUENCY:ONCE EVERY 2 WEEKS;?
     Route: 058
     Dates: start: 20200108, end: 20200305

REACTIONS (5)
  - Migraine [None]
  - Injection site urticaria [None]
  - Therapy cessation [None]
  - Injection site pain [None]
  - Influenza like illness [None]

NARRATIVE: CASE EVENT DATE: 20200305
